FAERS Safety Report 22243119 (Version 1)
Quarter: 2023Q2

REPORT INFORMATION
  Report Type: Spontaneous
  Country: GB (occurrence: None)
  Receive Date: 20230424
  Receipt Date: 20230424
  Transmission Date: 20230721
  Serious: Yes (Life-Threatening, Hospitalization)
  Sender: FDA-Public Use
  Company Number: GB-MHRA-MED-202304191933126340-YVSML

PATIENT
  Age: 35 Year
  Sex: Female

DRUGS (1)
  1. ENTRECTINIB [Suspect]
     Active Substance: ENTRECTINIB
     Indication: Adverse drug reaction
     Dosage: 600MG ONCE DAILY
     Route: 065
     Dates: start: 20230331

REACTIONS (4)
  - Anaphylactic reaction [Recovered/Resolved]
  - Dyspnoea [Recovered/Resolved]
  - Rash [Recovered/Resolved]
  - Hypoaesthesia oral [Recovered/Resolved]

NARRATIVE: CASE EVENT DATE: 20230401
